FAERS Safety Report 17668239 (Version 2)
Quarter: 2020Q2

REPORT INFORMATION
  Report Type: Spontaneous
  Country: IE (occurrence: IE)
  Receive Date: 20200415
  Receipt Date: 20200511
  Transmission Date: 20200713
  Serious: Yes (Life-Threatening, Other)
  Sender: FDA-Public Use
  Company Number: IE-BAUSCH-BL-2020-010666

PATIENT
  Sex: Female
  Weight: 72.1 kg

DRUGS (16)
  1. MABTHERA [Suspect]
     Active Substance: RITUXIMAB
     Dosage: R-ICE
     Route: 065
     Dates: end: 2016
  2. CARBOPLATIN. [Suspect]
     Active Substance: CARBOPLATIN
     Indication: DIFFUSE LARGE B-CELL LYMPHOMA
     Dosage: R-ICE
     Route: 065
     Dates: end: 2016
  3. DOXORUBICIN HYDROCHLORIDE. [Suspect]
     Active Substance: DOXORUBICIN HYDROCHLORIDE
     Indication: DIFFUSE LARGE B-CELL LYMPHOMA
     Dosage: R-CHOP
     Route: 065
     Dates: end: 201511
  4. MABTHERA [Suspect]
     Active Substance: RITUXIMAB
     Dosage: R-DHAP
     Route: 065
     Dates: end: 2016
  5. MABTHERA [Suspect]
     Active Substance: RITUXIMAB
     Dosage: R-GDP
     Route: 065
     Dates: start: 2019, end: 2020
  6. CYCLOPHOSPHAMIDE. [Suspect]
     Active Substance: CYCLOPHOSPHAMIDE
     Indication: DIFFUSE LARGE B-CELL LYMPHOMA
     Dosage: R-CHOP
     Route: 065
     Dates: end: 201511
  7. VINCRISTINE SULFATE. [Suspect]
     Active Substance: VINCRISTINE SULFATE
     Indication: DIFFUSE LARGE B-CELL LYMPHOMA
     Dosage: R-CHOP
     Route: 065
     Dates: end: 201511
  8. CISPLATIN. [Suspect]
     Active Substance: CISPLATIN
     Dosage: R-GDP
     Route: 065
     Dates: start: 2019, end: 2020
  9. CYTARABINE. [Suspect]
     Active Substance: CYTARABINE
     Indication: DIFFUSE LARGE B-CELL LYMPHOMA
     Dosage: R-DHAP
     Route: 065
     Dates: end: 2016
  10. IFOSFAMIDE. [Suspect]
     Active Substance: IFOSFAMIDE
     Indication: DIFFUSE LARGE B-CELL LYMPHOMA
     Dosage: R-ICE
     Route: 065
     Dates: end: 2016
  11. ETOPOSIDE. [Suspect]
     Active Substance: ETOPOSIDE
     Indication: DIFFUSE LARGE B-CELL LYMPHOMA
     Dosage: R-ICE
     Route: 065
     Dates: end: 2016
  12. CISPLATIN. [Suspect]
     Active Substance: CISPLATIN
     Indication: DIFFUSE LARGE B-CELL LYMPHOMA
     Dosage: R-DHAP
     Route: 065
     Dates: end: 2016
  13. DEXAMETHASONE. [Suspect]
     Active Substance: DEXAMETHASONE
     Indication: DIFFUSE LARGE B-CELL LYMPHOMA
     Dosage: R-DHAP
     Route: 065
     Dates: end: 2016
  14. DEXAMETHASONE. [Suspect]
     Active Substance: DEXAMETHASONE
     Dosage: R-GDP
     Route: 065
     Dates: start: 2019, end: 2020
  15. MABTHERA [Suspect]
     Active Substance: RITUXIMAB
     Indication: DIFFUSE LARGE B-CELL LYMPHOMA
     Dosage: R-CHOP
     Route: 065
     Dates: end: 201511
  16. GEMCITABINE. [Suspect]
     Active Substance: GEMCITABINE
     Indication: DIFFUSE LARGE B-CELL LYMPHOMA
     Dosage: R-GDP
     Route: 065
     Dates: start: 2019, end: 2020

REACTIONS (2)
  - Diffuse large B-cell lymphoma recurrent [Unknown]
  - Thrombotic thrombocytopenic purpura [Unknown]
